FAERS Safety Report 4279543-X (Version None)
Quarter: 2004Q1

REPORT INFORMATION
  Report Type: 
  Country: None (occurrence: None)
  Receive Date: 20040123
  Receipt Date: 20040112
  Transmission Date: 20041129
  Serious: Yes (Other)
  Sender: FDA-Public Use
  Company Number: 2004001962

PATIENT
  Age: 31 Year
  Sex: Female

DRUGS (4)
  1. VIRACEPT [Suspect]
     Indication: HIV INFECTION
     Dosage: 2500 MG (BID), ORAL
     Route: 048
     Dates: start: 19990101, end: 20031201
  2. FLUNCONAZOLE (FLUNCONAZOLE) [Concomitant]
  3. ALL OTHER THERAPEUTIC PRODUCTS [Concomitant]
  4. STAVUDINE (STAVUDINE) [Concomitant]

REACTIONS (2)
  - ALOPECIA [None]
  - MYCOBACTERIUM AVIUM COMPLEX INFECTION [None]
